FAERS Safety Report 14952129 (Version 2)
Quarter: 2018Q3

REPORT INFORMATION
  Report Type: Spontaneous
  Country: CH (occurrence: CH)
  Receive Date: 20180530
  Receipt Date: 20180703
  Transmission Date: 20181010
  Serious: Yes (Other)
  Sender: FDA-Public Use
  Company Number: CH-AMGEN-CHESP2018070661

PATIENT
  Age: 74 Year
  Sex: Female

DRUGS (5)
  1. KCL HAUSMANN [Concomitant]
     Dosage: 10 MMOL, QD
  2. CLOPIDOGREL MEPHA [Concomitant]
     Dosage: 75 UNK, QD
  3. CO?DIOVAN [Concomitant]
     Active Substance: HYDROCHLOROTHIAZIDE\VALSARTAN
     Dosage: UNK UNK (160/12.5) MG, BID
  4. REPATHA [Suspect]
     Active Substance: EVOLOCUMAB
     Indication: PRODUCT USED FOR UNKNOWN INDICATION
     Dosage: 140 MG/ML, Q2WK
     Route: 065
     Dates: start: 20161113, end: 20180506
  5. ESOMEPRAZOL MEPHA [Concomitant]
     Active Substance: ESOMEPRAZOLE MAGNESIUM
     Dosage: 20 MG, QD

REACTIONS (6)
  - Anxiety [Unknown]
  - Therapy non-responder [Unknown]
  - Pruritus [Recovered/Resolved]
  - Hallucination, visual [Recovered/Resolved]
  - Fatigue [Recovered/Resolved]
  - Nightmare [Recovered/Resolved]

NARRATIVE: CASE EVENT DATE: 201711
